FAERS Safety Report 10368937 (Version 1)
Quarter: 2014Q1

REPORT INFORMATION
  Report Type: Spontaneous
  Country: US (occurrence: None)
  Receive Date: 20140306
  Receipt Date: 20140306
  Transmission Date: 20141002
  Serious: Yes (Other)
  Sender: FDA-Public Use
  Company Number: 163-21880-13091723

PATIENT
  Age: 78 Year
  Sex: Female

DRUGS (8)
  1. REVLIMID [Suspect]
     Indication: MYELODYSPLASTIC SYNDROME
     Dosage: 10 MG , 1 IN 2 D, PO
     Route: 048
     Dates: start: 201208
  2. METOPROLOL SUCCINATE ER (METOPROLOL SUCCINATE) [Concomitant]
  3. LISINOPRIL [Concomitant]
  4. MELATONIN [Concomitant]
  5. SYMBICORT (SYMUCORT TURBOHAILER ^DRACO^) [Concomitant]
  6. ZANTAC (RANITIDINE HYDROCHLORIDE) [Concomitant]
  7. SYSTANE (RHINARIS) [Concomitant]
  8. GLUCOSAMIDE CHONDROITIN (GLUCOSAMINE W/CHONDROITIN SUFATE) [Concomitant]

REACTIONS (3)
  - Thrombosis [None]
  - Urinary tract infection [None]
  - Diarrhoea [None]
